FAERS Safety Report 8622968 (Version 2)
Quarter: 2012Q4

REPORT INFORMATION
  Report Type: 
  Country: US (occurrence: US)
  Receive Date: 20120619
  Receipt Date: 20121220
  Transmission Date: 20130627
  Serious: Yes (Other)
  Sender: FDA-Public Use
  Company Number: US-PFIZER INC-2012144477

PATIENT
  Sex: Female

DRUGS (1)
  1. EFFEXOR XR [Suspect]
     Dosage: UNK

REACTIONS (5)
  - Pulmonary congestion [Unknown]
  - Crying [Unknown]
  - Confusional state [Unknown]
  - Feeling abnormal [Unknown]
  - Cough [Unknown]
